FAERS Safety Report 4884358-5 (Version None)
Quarter: 2006Q1

REPORT INFORMATION
  Report Type: 
  Country: None (occurrence: None)
  Receive Date: 20060117
  Receipt Date: 20060117
  Transmission Date: 20060701
  Serious: Yes (Hospitalization)
  Sender: FDA-Public Use
  Company Number: None

PATIENT
  Age: 47 Year
  Sex: Female

DRUGS (5)
  1. TRAMADOL HCL [Suspect]
     Indication: PAIN
     Dates: start: 20040301
  2. WELLBUTRIN [Suspect]
     Indication: DEPRESSION
     Dates: start: 20040301
  3. PERCOCET [Concomitant]
  4. NEURONTIN [Concomitant]
  5. EFFEXOR XR [Concomitant]

REACTIONS (1)
  - CONVULSION [None]
